FAERS Safety Report 24685751 (Version 2)
Quarter: 2025Q1

REPORT INFORMATION
  Report Type: Spontaneous
  Country: US (occurrence: US)
  Receive Date: 20241202
  Receipt Date: 20250314
  Transmission Date: 20250409
  Serious: No
  Sender: PFIZER
  Company Number: US-PFIZER INC-PV202400153345

PATIENT
  Age: 24 Year

DRUGS (2)
  1. VELSIPITY [Interacting]
     Active Substance: ETRASIMOD ARGININE
     Dosage: 2 MG, DAILY
  2. PREDNISONE [Interacting]
     Active Substance: PREDNISONE

REACTIONS (1)
  - Drug interaction [Unknown]
